FAERS Safety Report 7161795-X (Version None)
Quarter: 2010Q4

REPORT INFORMATION
  Report Type: 
  Country: None (occurrence: None)
  Receive Date: 20101215
  Receipt Date: 20101206
  Transmission Date: 20110411
  Serious: Yes (Hospitalization)
  Sender: FDA-Public Use
  Company Number: BR-ASTRAZENECA-2010SE57897

PATIENT
  Age: 69 Year
  Sex: Female

DRUGS (3)
  1. NEXIUM [Suspect]
     Indication: ABDOMINAL PAIN UPPER
     Route: 048
     Dates: start: 20101129, end: 20101130
  2. NEXIUM [Suspect]
     Indication: NAUSEA
     Route: 048
     Dates: start: 20101129, end: 20101130
  3. MOTILIUM [Concomitant]

REACTIONS (4)
  - ABDOMINAL PAIN UPPER [None]
  - CHOLELITHIASIS [None]
  - DRUG INEFFECTIVE [None]
  - NAUSEA [None]
